FAERS Safety Report 8816267 (Version 1)
Quarter: 2012Q4

REPORT INFORMATION
  Report Type: Spontaneous
  Country: US (occurrence: None)
  Receive Date: 20120928
  Receipt Date: 20120928
  Transmission Date: 20130627
  Serious: No
  Sender: FDA-Public Use
  Company Number: None

PATIENT
  Age: 83 Year
  Sex: Male
  Weight: 87.54 kg

DRUGS (1)
  1. ZOLPIDEM [Suspect]
     Indication: SLEEP DISORDER THERAPY
     Dosage: 10 MG at Bed Time
     Dates: start: 20120909

REACTIONS (4)
  - Abdominal pain upper [None]
  - Nausea [None]
  - Vomiting [None]
  - Feeling abnormal [None]
